FAERS Safety Report 13958534 (Version 1)
Quarter: 2017Q3

REPORT INFORMATION
  Report Type: Spontaneous
  Country: US (occurrence: US)
  Receive Date: 20170911
  Receipt Date: 20170911
  Transmission Date: 20171128
  Serious: No
  Sender: FDA-Public Use
  Company Number: US-ROCHE-1057301

PATIENT
  Sex: Male

DRUGS (3)
  1. SOLU-MEDROL [Concomitant]
     Active Substance: METHYLPREDNISOLONE SODIUM SUCCINATE
     Indication: GRANULOMATOSIS WITH POLYANGIITIS
  2. PREDNISONE [Concomitant]
     Indication: GRANULOMATOSIS WITH POLYANGIITIS
     Route: 048
  3. RITUXAN [Suspect]
     Active Substance: RITUXIMAB
     Indication: GRANULOMATOSIS WITH POLYANGIITIS
     Route: 042
     Dates: start: 20120306

REACTIONS (6)
  - Anxiety [Unknown]
  - Malaise [Unknown]
  - Pain [Unknown]
  - Red blood cell sedimentation rate increased [Unknown]
  - Antineutrophil cytoplasmic antibody increased [Unknown]
  - Pyrexia [Unknown]
